FAERS Safety Report 15823485 (Version 4)
Quarter: 2019Q3

REPORT INFORMATION
  Report Type: Report from Study
  Country: US (occurrence: US)
  Receive Date: 20190114
  Receipt Date: 20190718
  Transmission Date: 20191004
  Serious: Yes (Hospitalization, Other)
  Sender: FDA-Public Use
  Company Number: US-TAKEDA-2019TUS000788

PATIENT
  Sex: Male

DRUGS (1)
  1. PONATINIB [Suspect]
     Active Substance: PONATINIB
     Indication: CHRONIC MYELOID LEUKAEMIA RECURRENT
     Dosage: 30 MILLIGRAM, QD
     Route: 048
     Dates: start: 20181221

REACTIONS (14)
  - Testicular pain [Unknown]
  - Conjunctivitis viral [Unknown]
  - Graft versus host disease [Unknown]
  - Bone pain [Unknown]
  - Pruritus [Unknown]
  - Pain [Unknown]
  - Haemochromatosis [Unknown]
  - Leukaemia recurrent [Unknown]
  - Euphoric mood [Unknown]
  - Nocturia [Unknown]
  - Hepatic fibrosis [Unknown]
  - Blood pressure increased [Unknown]
  - Hepatic steatosis [Unknown]
  - Chronic hepatitis [Unknown]
